FAERS Safety Report 22134955 (Version 1)
Quarter: 2023Q1

REPORT INFORMATION
  Report Type: Spontaneous
  Country: CN (occurrence: CN)
  Receive Date: 20230324
  Receipt Date: 20230324
  Transmission Date: 20230417
  Serious: Yes (Other)
  Sender: FDA-Public Use
  Company Number: CN-009507513-2303CHN007505

PATIENT
  Age: 45 Year
  Sex: Female
  Weight: 32.5 kg

DRUGS (2)
  1. CILASTATIN SODIUM\IMIPENEM [Suspect]
     Active Substance: CILASTATIN SODIUM\IMIPENEM
     Indication: Pneumonia
     Dosage: 1 G, Q8H, IV DRIP
     Route: 041
     Dates: start: 20230221, end: 20230223
  2. SODIUM CHLORIDE [Concomitant]
     Active Substance: SODIUM CHLORIDE
     Indication: Medication dilution
     Dosage: 250 ML, Q8H, IV DRIP
     Route: 041
     Dates: start: 20230221, end: 20230223

REACTIONS (2)
  - Epilepsy [Recovering/Resolving]
  - Sinus bradycardia [Unknown]

NARRATIVE: CASE EVENT DATE: 20230223
